FAERS Safety Report 5831652-7 (Version None)
Quarter: 2008Q3

REPORT INFORMATION
  Report Type: 
  Country: None (occurrence: None)
  Receive Date: 20080730
  Receipt Date: 20080714
  Transmission Date: 20090109
  Serious: Yes (Hospitalization)
  Sender: FDA-Public Use
  Company Number: 2008AL008220

PATIENT
  Age: 73 Year
  Sex: Male
  Weight: 106.5953 kg

DRUGS (2)
  1. DIGOXIN [Suspect]
     Indication: CARDIAC FAILURE CONGESTIVE
     Dosage: 0.25 MG DAILY PO
     Route: 048
     Dates: start: 20020101, end: 20080510
  2. DIGOXIN [Suspect]
     Indication: ATRIAL FIBRILLATION
     Dosage: 0.25MG DAILY PO
     Route: 048
     Dates: start: 20020101, end: 20080510

REACTIONS (9)
  - BLOOD PRESSURE IMMEASURABLE [None]
  - CARDIAC PACEMAKER MALFUNCTION [None]
  - CAROTID ARTERIOSCLEROSIS [None]
  - EXCORIATION [None]
  - FALL [None]
  - LOSS OF CONSCIOUSNESS [None]
  - PLEURAL EFFUSION [None]
  - STAPHYLOCOCCAL INFECTION [None]
  - WEIGHT DECREASED [None]
